FAERS Safety Report 9597647 (Version 4)
Quarter: 2014Q2

REPORT INFORMATION
  Report Type: Report from Study
  Country: TR (occurrence: TR)
  Receive Date: 20131004
  Receipt Date: 20140507
  Transmission Date: 20141212
  Serious: Yes (Death, Hospitalization)
  Sender: FDA-Public Use
  Company Number: TR-B.I. PHARMACEUTICALS,INC./RIDGEFIELD-2013-BI-29898BI

PATIENT
  Age: 71 Year
  Sex: Male
  Weight: 58 kg

DRUGS (5)
  1. BIBW 2992 [Suspect]
     Indication: SQUAMOUS CELL CARCINOMA OF LUNG
     Dosage: 40 MG
     Route: 048
     Dates: start: 20130829
  2. ONZYL [Concomitant]
     Indication: NAUSEA
     Dosage: 8 MG
     Route: 048
     Dates: start: 20130829
  3. ONZYL [Concomitant]
     Indication: VOMITING
  4. ENSURE [Concomitant]
     Indication: NUTRITIONAL SUPPLEMENTATION
     Dosage: 440 MG
     Route: 048
     Dates: start: 20130905
  5. LOMOTIL [Concomitant]
     Indication: DIARRHOEA
     Dosage: 7.5 MG
     Route: 048
     Dates: start: 20130905

REACTIONS (2)
  - Renal failure acute [Fatal]
  - Diarrhoea [Unknown]
